FAERS Safety Report 15884797 (Version 1)
Quarter: 2019Q1

REPORT INFORMATION
  Report Type: Spontaneous
  Country: DE (occurrence: DE)
  Receive Date: 20190129
  Receipt Date: 20190129
  Transmission Date: 20190417
  Serious: Yes (Life-Threatening, Other)
  Sender: FDA-Public Use
  Company Number: DE-PFIZER INC-2019036905

PATIENT
  Age: 81 Year
  Sex: Female
  Weight: 68 kg

DRUGS (16)
  1. MIRTAZAPIN [Concomitant]
     Active Substance: MIRTAZAPINE
     Dosage: 15 MG, 1X/DAY
     Route: 048
  2. CANDESARTAN. [Concomitant]
     Active Substance: CANDESARTAN
     Dosage: 0.5 DF, 1X/DAY
     Route: 048
  3. FOLIC ACID. [Concomitant]
     Active Substance: FOLIC ACID
     Dosage: 5 MG, WEEKLY
     Route: 048
  4. L-THYROXIN [Concomitant]
     Active Substance: LEVOTHYROXINE SODIUM
     Dosage: 1 DF, 1X/DAY
     Route: 048
  5. METAMIZOLE [Interacting]
     Active Substance: METAMIZOLE
     Indication: PAIN
     Dosage: 4 G, 1X/DAY
     Route: 048
     Dates: end: 20181214
  6. PALLADON [Concomitant]
     Active Substance: HYDROMORPHONE
     Dosage: 1.2 MG, UNK
     Route: 048
  7. METHOTREXATE SODIUM. [Suspect]
     Active Substance: METHOTREXATE SODIUM
     Indication: POLYARTHRITIS
     Dosage: 10 MG, WEEKLY
     Dates: end: 20181214
  8. CERTOPARIN SODIUM [Concomitant]
     Active Substance: CERTOPARIN SODIUM
     Dosage: 1 DF, 1X/DAY
     Route: 048
  9. TORASEMID [Concomitant]
     Active Substance: TORSEMIDE
     Dosage: 15 MG, 1X/DAY
     Route: 048
  10. MACROGOL [Concomitant]
     Active Substance: POLYETHYLENE GLYCOLS
     Dosage: 2 DF, 1X/DAY
     Route: 048
  11. HYDROMORPHONE [Concomitant]
     Active Substance: HYDROMORPHONE
     Dosage: 8 MG, 1X/DAY
     Route: 048
  12. PANTOPRAZOLE [Concomitant]
     Active Substance: PANTOPRAZOLE
     Dosage: 20 MG, 1X/DAY
     Route: 048
  13. SPASMEX [Concomitant]
     Dosage: 15 MG, 1X/DAY
     Route: 048
  14. XIPAMIDE [Concomitant]
     Active Substance: XIPAMIDE
     Dosage: 5 MG, 1X/DAY
     Route: 048
  15. ALENDRONIC ACID [Concomitant]
     Active Substance: ALENDRONIC ACID
     Dosage: 70 MG, WEEKLY
     Route: 048
  16. EKLIRA [Concomitant]
     Active Substance: ACLIDINIUM BROMIDE
     Dosage: 2 DF, 1X/DAY
     Route: 055

REACTIONS (3)
  - Agranulocytosis [Recovering/Resolving]
  - Drug interaction [Recovering/Resolving]
  - Pneumonia [Recovering/Resolving]

NARRATIVE: CASE EVENT DATE: 20181214
